FAERS Safety Report 6180227-1 (Version None)
Quarter: 2009Q2

REPORT INFORMATION
  Report Type: 
  Country: None (occurrence: None)
  Receive Date: 20090504
  Receipt Date: 20090423
  Transmission Date: 20091009
  Serious: Yes (Other)
  Sender: FDA-Public Use
  Company Number: 2009US001298

PATIENT
  Age: 59 Year
  Sex: Male

DRUGS (2)
  1. PROGRAF [Suspect]
     Indication: LIVER TRANSPLANT
     Dosage: 90 MG, BID
  2. SIROLIMUS (SIROLIMUS) [Concomitant]

REACTIONS (5)
  - CANDIDIASIS [None]
  - DRUG LEVEL INCREASED [None]
  - LARYNGEAL CANCER [None]
  - MUCOSAL INFLAMMATION [None]
  - PNEUMONIA [None]
